FAERS Safety Report 8884011 (Version 6)
Quarter: 2016Q4

REPORT INFORMATION
  Report Type: Spontaneous
  Country: US (occurrence: US)
  Receive Date: 20121102
  Receipt Date: 20161101
  Transmission Date: 20170207
  Serious: Yes (Hospitalization, Disabling, Other)
  Sender: FDA-Public Use
  Company Number: US-MERCK-1210USA010339

PATIENT
  Sex: Female
  Weight: 74.83 kg

DRUGS (12)
  1. HORMONES (UNSPECIFIED) [Concomitant]
     Active Substance: UNSPECIFIED INGREDIENT
     Route: 065
  2. GLUCOPHAGE [Concomitant]
     Active Substance: METFORMIN HYDROCHLORIDE
     Route: 065
  3. ALENDRONATE SODIUM. [Suspect]
     Active Substance: ALENDRONATE SODIUM
     Dosage: 70 MG, UNK
     Route: 048
     Dates: start: 20090904
  4. FOSAMAX [Suspect]
     Active Substance: ALENDRONATE SODIUM
     Dosage: 70 MG, UNK
     Route: 048
     Dates: start: 20100726, end: 20101227
  5. CALIUM (CALCIUM CARBONATE) [Concomitant]
     Dosage: 600 UNK, +D
     Route: 065
     Dates: start: 2000
  6. ALENDRONATE SODIUM. [Suspect]
     Active Substance: ALENDRONATE SODIUM
     Indication: OSTEOPENIA
     Dosage: 70 MG, UNK
     Route: 048
     Dates: start: 20090629
  7. ALENDRONATE SODIUM. [Suspect]
     Active Substance: ALENDRONATE SODIUM
     Dosage: 70 MG, UNK
     Route: 048
     Dates: start: 20091130, end: 20100428
  8. FOSAMAX [Suspect]
     Active Substance: ALENDRONATE SODIUM
     Indication: OSTEOPOROSIS
     Dosage: 70 MG, UNK
     Route: 048
     Dates: start: 200002, end: 201110
  9. FOSAMAX [Suspect]
     Active Substance: ALENDRONATE SODIUM
     Dosage: 70 MG, UNK
     Route: 048
     Dates: start: 20040604, end: 20080201
  10. ALENDRONATE SODIUM. [Suspect]
     Active Substance: ALENDRONATE SODIUM
     Dosage: 70 MG, UNK
     Route: 048
     Dates: start: 20110702
  11. ALENDRONATE SODIUM. [Suspect]
     Active Substance: ALENDRONATE SODIUM
     Indication: OSTEOPOROSIS
     Dosage: 70 MG, UNK
     Route: 048
     Dates: start: 20080301, end: 20090612
  12. COZAAR [Concomitant]
     Active Substance: LOSARTAN POTASSIUM
     Route: 065

REACTIONS (25)
  - Asymptomatic bacteriuria [Unknown]
  - Chronic obstructive pulmonary disease [Recovering/Resolving]
  - Hypoxia [Recovering/Resolving]
  - Procedural hypotension [Recovering/Resolving]
  - Musculoskeletal pain [Unknown]
  - Anaemia [Unknown]
  - Stress fracture [Not Recovered/Not Resolved]
  - Foot operation [Unknown]
  - Knee operation [Unknown]
  - Renal failure [Unknown]
  - Femur fracture [Not Recovered/Not Resolved]
  - Osteoporosis [Not Recovered/Not Resolved]
  - Upper limb fracture [Recovered/Resolved]
  - Depression [Unknown]
  - Device breakage [Unknown]
  - Femur fracture [Recovered/Resolved]
  - Femur fracture [Not Recovered/Not Resolved]
  - Rotator cuff repair [Unknown]
  - Low turnover osteopathy [Not Recovered/Not Resolved]
  - Hyperlipidaemia [Unknown]
  - Muscle strain [Unknown]
  - Bronchitis [Recovering/Resolving]
  - Hysterectomy [Unknown]
  - Accident at work [Recovered/Resolved]
  - Rotator cuff syndrome [Unknown]

NARRATIVE: CASE EVENT DATE: 2000
